FAERS Safety Report 6670829-8 (Version None)
Quarter: 2010Q2

REPORT INFORMATION
  Report Type: 
  Country: None (occurrence: None)
  Receive Date: 20100407
  Receipt Date: 20100326
  Transmission Date: 20101027
  Serious: Yes (Other)
  Sender: FDA-Public Use
  Company Number: US-JNJCH-2010008126

PATIENT
  Age: 83 Year
  Sex: Male
  Weight: 77.1 kg

DRUGS (1)
  1. ROLAIDS [Suspect]
     Indication: DRUG USE FOR UNKNOWN INDICATION
     Dosage: TEXT:UNSPECIFIED ^CONSTANTLY^
     Route: 048

REACTIONS (6)
  - DEPENDENCE [None]
  - DIARRHOEA [None]
  - FATIGUE [None]
  - MALAISE [None]
  - OVERDOSE [None]
  - PAIN [None]
